FAERS Safety Report 8710401 (Version 3)
Quarter: 2013Q1

REPORT INFORMATION
  Report Type: Report from Study
  Country: JP (occurrence: JP)
  Receive Date: 20120807
  Receipt Date: 20130225
  Transmission Date: 20140127
  Serious: Yes (Other)
  Sender: FDA-Public Use
  Company Number: JP-VERTEX PHARMACEUTICALS INC.-AE-2012-011249

PATIENT
  Age: 46 Year
  Sex: Male

DRUGS (7)
  1. VX-950 (TELAPREVIR) [Suspect]
     Indication: CHRONIC HEPATITIS C
     Dosage: 22500 MG, QD
     Route: 048
     Dates: start: 20120611, end: 20120712
  2. RIBAVIRIN [Suspect]
     Indication: CHRONIC HEPATITIS C
     Dosage: 800 MG, QD
     Route: 048
     Dates: start: 20120611, end: 20120712
  3. PEGINTERFERON ALFA-2B [Suspect]
     Indication: CHRONIC HEPATITIS C
     Dosage: 1.5 ?G/KG, QW
     Route: 058
     Dates: start: 20120611, end: 20120706
  4. ACINON [Concomitant]
     Dosage: 150 MG, QD/PRN
     Route: 048
     Dates: start: 20120614, end: 20120626
  5. MUCOSTA [Concomitant]
     Dosage: 100 MG, QD/PRN
     Route: 048
     Dates: start: 20120627, end: 20120701
  6. GASMOTIN [Concomitant]
     Dosage: 5 MG, QD
     Route: 048
     Dates: start: 20120713
  7. URSO [Concomitant]
     Dosage: 600 MG, QD
     Route: 048
     Dates: start: 20120507, end: 20120625

REACTIONS (1)
  - Depressive symptom [Recovered/Resolved]
